FAERS Safety Report 13574597 (Version 3)
Quarter: 2018Q1

REPORT INFORMATION
  Report Type: Report from Study
  Country: PA (occurrence: PA)
  Receive Date: 20170523
  Receipt Date: 20180326
  Transmission Date: 20180508
  Serious: Yes (Other)
  Sender: FDA-Public Use
  Company Number: PHHY2017PA075519

PATIENT
  Sex: Female
  Weight: 105.21 kg

DRUGS (6)
  1. CLONAZEPAM. [Concomitant]
     Active Substance: CLONAZEPAM
     Indication: PRODUCT USED FOR UNKNOWN INDICATION
     Dosage: 1.5 MG, QHS
     Route: 065
  2. OMEGA-3 ACIDS [Concomitant]
     Active Substance: OMEGA-3 FATTY ACIDS
     Indication: PRODUCT USED FOR UNKNOWN INDICATION
     Dosage: UNK UNK, QHS
     Route: 065
  3. GILENYA [Suspect]
     Active Substance: FINGOLIMOD HYDROCHLORIDE
     Indication: MULTIPLE SCLEROSIS
     Dosage: 0.5 MG, QD (MORNING)
     Route: 065
     Dates: start: 20130813
  4. CLEMASTINE FUMARATE. [Concomitant]
     Active Substance: CLEMASTINE FUMARATE
     Indication: PRODUCT USED FOR UNKNOWN INDICATION
     Dosage: UNK UNK, QHS
     Route: 065
  5. DIANE (CYPROTERONE ACETATE\ETHINYL ESTRADIOL) [Concomitant]
     Active Substance: CYPROTERONE ACETATE\ETHINYL ESTRADIOL
     Indication: PRODUCT USED FOR UNKNOWN INDICATION
     Route: 065
  6. MAGNESIUM [Concomitant]
     Active Substance: MAGNESIUM
     Indication: PRODUCT USED FOR UNKNOWN INDICATION
     Dosage: UNK UNK, QHS
     Route: 065

REACTIONS (7)
  - Hepatotoxicity [Recovering/Resolving]
  - Peripheral swelling [Unknown]
  - Blood prolactin increased [Recovering/Resolving]
  - Vitamin B complex deficiency [Recovering/Resolving]
  - Central nervous system lesion [Recovered/Resolved]
  - Contusion [Recovering/Resolving]
  - Haematoma [Unknown]

NARRATIVE: CASE EVENT DATE: 2016
